FAERS Safety Report 7561539-3 (Version None)
Quarter: 2011Q2

REPORT INFORMATION
  Report Type: 
  Country: None (occurrence: None)
  Receive Date: 20110621
  Receipt Date: 20100930
  Transmission Date: 20111010
  Serious: No
  Sender: FDA-Public Use
  Company Number: US-ASTRAZENECA-2010SE40269

PATIENT
  Age: 85 Year
  Sex: Female
  Weight: 54.9 kg

DRUGS (7)
  1. SYNTHROID [Concomitant]
  2. METOPROLOL TARTRATE [Concomitant]
  3. PULMICORT FLEXHALER [Suspect]
     Dosage: 180 UG 1 PUFFS BID
     Route: 055
  4. VITAMIN D [Concomitant]
  5. LIPITOR [Concomitant]
  6. PULMICORT FLEXHALER [Suspect]
     Indication: ASTHMA
     Dosage: 180 UG 2 PUFFS BID
     Route: 055
  7. BENECAR [Concomitant]

REACTIONS (1)
  - DIZZINESS [None]
